FAERS Safety Report 4722798-5 (Version None)
Quarter: 2005Q3

REPORT INFORMATION
  Report Type: 
  Country: None (occurrence: None)
  Receive Date: 20050722
  Receipt Date: 20050606
  Transmission Date: 20060218
  Serious: Yes (Hospitalization)
  Sender: FDA-Public Use
  Company Number: 200515194GDDC

PATIENT
  Age: 94 Year
  Sex: Male

DRUGS (11)
  1. GLIBENCLAMIDE [Suspect]
     Route: 048
     Dates: start: 20030615, end: 20050419
  2. FUROSEMIDE [Suspect]
     Dates: end: 20050419
  3. RISPERDAL [Concomitant]
  4. ALVEDON [Concomitant]
  5. MOVICOL [Concomitant]
  6. CITALOPRAM [Concomitant]
  7. NITROLINGUAL [Concomitant]
  8. TRADOLAN [Concomitant]
  9. SALURES-K [Concomitant]
  10. TRIOBE [Concomitant]
  11. OMEPRAZOLE [Concomitant]

REACTIONS (3)
  - BLOOD DISORDER [None]
  - LYMPHADENOPATHY [None]
  - PANCYTOPENIA [None]
